FAERS Safety Report 12296776 (Version 1)
Quarter: 2016Q2

REPORT INFORMATION
  Report Type: Spontaneous
  Country: VE (occurrence: VE)
  Receive Date: 20160422
  Receipt Date: 20160422
  Transmission Date: 20160815
  Serious: Yes (Other)
  Sender: FDA-Public Use
  Company Number: VE-AMGEN-VENSP2016051180

PATIENT
  Age: 70 Year
  Sex: Female

DRUGS (1)
  1. ENBREL [Suspect]
     Active Substance: ETANERCEPT
     Indication: RHEUMATOID ARTHRITIS
     Dosage: 50 MG, WEEKLY
     Route: 065
     Dates: start: 201512, end: 2016

REACTIONS (4)
  - Cellulitis [Not Recovered/Not Resolved]
  - Peripheral swelling [Recovered/Resolved]
  - Erythema nodosum [Not Recovered/Not Resolved]
  - Disease progression [Not Recovered/Not Resolved]
